FAERS Safety Report 10224350 (Version 2)
Quarter: 2014Q4

REPORT INFORMATION
  Report Type: Spontaneous
  Country: US (occurrence: None)
  Receive Date: 20140605
  Receipt Date: 20141106
  Transmission Date: 20150528
  Serious: Yes (Other)
  Sender: FDA-Public Use
  Company Number: UNT-2014-001200

PATIENT
  Age: 82 Year
  Sex: Female
  Weight: 64.4 kg

DRUGS (2)
  1. REVATIO (SILDENAFIL CITRATE) [Concomitant]
  2. TYVASO [Suspect]
     Active Substance: TREPROSTINIL
     Indication: PULMONARY ARTERIAL HYPERTENSION
     Route: 055
     Dates: start: 20140506

REACTIONS (2)
  - Cellulitis [None]
  - Cough [None]

NARRATIVE: CASE EVENT DATE: 2014
